FAERS Safety Report 5495659-4 (Version None)
Quarter: 2007Q4

REPORT INFORMATION
  Report Type: 
  Country: None (occurrence: None)
  Receive Date: 20071015
  Receipt Date: 20060831
  Transmission Date: 20080405
  Serious: Yes (Hospitalization)
  Sender: FDA-Public Use
  Company Number: S06-USA-03545-01

PATIENT
  Sex: Male

DRUGS (3)
  1. LEXAPRO [Suspect]
     Dosage: 5 MG QD PO
     Route: 048
  2. REMERON [Concomitant]
  3. TENORMIN [Concomitant]

REACTIONS (2)
  - FLUSHING [None]
  - HYPERTENSION [None]
